FAERS Safety Report 19613660 (Version 1)
Quarter: 2021Q3

REPORT INFORMATION
  Report Type: Spontaneous
  Country: US (occurrence: US)
  Receive Date: 20210727
  Receipt Date: 20210727
  Transmission Date: 20211014
  Serious: Yes (Disabling)
  Sender: FDA-Public Use
  Company Number: None

PATIENT
  Age: 39 Year
  Sex: Male
  Weight: 87.75 kg

DRUGS (3)
  1. ALPRAZOLAM ER [Concomitant]
     Active Substance: ALPRAZOLAM
  2. TRIAMCINOLONE ACETONIDE CREAM 0.1% [Suspect]
     Active Substance: TRIAMCINOLONE ACETONIDE
     Indication: ECZEMA
     Route: 061
  3. SERTRALINE [Concomitant]
     Active Substance: SERTRALINE HYDROCHLORIDE

REACTIONS (7)
  - Skin swelling [None]
  - Skin warm [None]
  - Skin exfoliation [None]
  - Pruritus [None]
  - Withdrawal syndrome [None]
  - Skin haemorrhage [None]
  - Rash erythematous [None]

NARRATIVE: CASE EVENT DATE: 20210628
